FAERS Safety Report 18893600 (Version 2)
Quarter: 2021Q1

REPORT INFORMATION
  Report Type: Spontaneous
  Country: GB (occurrence: GB)
  Receive Date: 20210215
  Receipt Date: 20210330
  Transmission Date: 20210420
  Serious: Yes (Other)
  Sender: FDA-Public Use
  Company Number: GB-JNJFOC-20210215507

PATIENT
  Age: 32 Year
  Sex: Female
  Weight: 76.2 kg

DRUGS (2)
  1. PREGNACARE ORIGINAL [Concomitant]
     Indication: ILL-DEFINED DISORDER
     Route: 065
  2. CETIRIZINE HYDROCHLORIDE. [Suspect]
     Active Substance: CETIRIZINE HYDROCHLORIDE
     Indication: SEASONAL ALLERGY
     Dosage: 10MG OD
     Route: 048
     Dates: start: 20120101, end: 20210130

REACTIONS (1)
  - Pruritus [Not Recovered/Not Resolved]

NARRATIVE: CASE EVENT DATE: 20210101
